FAERS Safety Report 9278152 (Version 1)
Quarter: 2012Q4

REPORT INFORMATION
  Report Type: Spontaneous
  Country: US (occurrence: None)
  Receive Date: 20121109
  Receipt Date: 20121109
  Transmission Date: 20130627
  Serious: Yes (Hospitalization, Other)
  Sender: FDA-Public Use
  Company Number: 2011S1000814

PATIENT
  Age: 91 Year
  Sex: Female
  Weight: 43.8 kg

DRUGS (3)
  1. CUBICIN [Suspect]
     Indication: INTERVERTEBRAL DISKITIS
     Dosage: Q48H
     Route: 042
     Dates: start: 201110, end: 20111112
  2. CUBICIN [Suspect]
     Indication: OSTEOMYELITIS
     Dosage: Q48H
     Route: 042
     Dates: start: 201110, end: 20111112
  3. CUBICIN [Suspect]
     Indication: INTERVERTEBRAL DISCITIS
     Dosage: Q48H
     Route: 042
     Dates: start: 201110, end: 20111112

REACTIONS (9)
  - Confusional state [None]
  - Hypercalcaemia [None]
  - Eosinophilia [None]
  - Renal failure acute [None]
  - Dehydration [None]
  - Delirium [None]
  - Cough [None]
  - Chest X-ray abnormal [None]
  - Pleural effusion [None]
